FAERS Safety Report 17812702 (Version 1)
Quarter: 2020Q2

REPORT INFORMATION
  Report Type: Spontaneous
  Country: CA (occurrence: CA)
  Receive Date: 20200521
  Receipt Date: 20200521
  Transmission Date: 20200714
  Serious: Yes (Death, Other)
  Sender: FDA-Public Use
  Company Number: CA-SA-2020SA128454

PATIENT
  Age: 20 Month
  Sex: Female

DRUGS (6)
  1. FLUDARA [Suspect]
     Active Substance: FLUDARABINE PHOSPHATE
     Indication: LYMPHOPROLIFERATIVE DISORDER
     Route: 065
  2. CYTARABINE. [Suspect]
     Active Substance: CYTARABINE
     Indication: LYMPHOPROLIFERATIVE DISORDER
     Route: 037
  3. METHOTREXATE. [Concomitant]
     Active Substance: METHOTREXATE
  4. ALEMTUZUMAB [Suspect]
     Active Substance: ALEMTUZUMAB
     Indication: LYMPHOPROLIFERATIVE DISORDER
     Route: 042
  5. TACROLIMUS. [Concomitant]
     Active Substance: TACROLIMUS
  6. GRANULOCYTE COLONY STIMULATING FACTOR [Suspect]
     Active Substance: GRANULOCYTE COLONY-STIMULATING FACTOR NOS
     Indication: LYMPHOPROLIFERATIVE DISORDER
     Route: 065

REACTIONS (1)
  - Heart transplant rejection [Fatal]
